FAERS Safety Report 5402180-8 (Version None)
Quarter: 2007Q3

REPORT INFORMATION
  Report Type: 
  Country: None (occurrence: None)
  Receive Date: 20070730
  Receipt Date: 20070724
  Transmission Date: 20080115
  Serious: Yes (Death, Hospitalization)
  Sender: FDA-Public Use
  Company Number: 163-20785-07051174

PATIENT
  Age: 82 Year
  Sex: Male

DRUGS (14)
  1. THALOMID [Suspect]
     Indication: MULTIPLE MYELOMA
     Dosage: 100 MG, QHS, ORAL; 150 MG, 3 IN 1 D, ORAL
     Route: 048
     Dates: start: 20060607, end: 20060101
  2. THALOMID [Suspect]
     Indication: MULTIPLE MYELOMA
     Dosage: 100 MG, QHS, ORAL; 150 MG, 3 IN 1 D, ORAL
     Route: 048
     Dates: start: 20070418
  3. MULTIVITAMIN [Concomitant]
  4. LEVOXYL [Concomitant]
  5. LEXAPRO [Concomitant]
  6. PRILOSEC [Concomitant]
  7. AMIODARONE HCL [Concomitant]
  8. MEGACE [Concomitant]
  9. NORCO [Concomitant]
  10. COUMADIN [Concomitant]
  11. FLUTAMIDE [Concomitant]
  12. PHOSLO [Concomitant]
  13. ZOCOR [Concomitant]
  14. REGLAN [Concomitant]

REACTIONS (12)
  - AZOTAEMIA [None]
  - BLOOD ALBUMIN DECREASED [None]
  - CARDIO-RESPIRATORY ARREST [None]
  - CARDIOPULMONARY FAILURE [None]
  - DEFAECATION URGENCY [None]
  - DIALYSIS [None]
  - DIARRHOEA [None]
  - HYPERKALAEMIA [None]
  - MALIGNANT NEOPLASM PROGRESSION [None]
  - MULTIPLE MYELOMA [None]
  - PCO2 DECREASED [None]
  - RENAL FAILURE CHRONIC [None]
